FAERS Safety Report 9400175 (Version 2)
Quarter: 2013Q3

REPORT INFORMATION
  Report Type: Spontaneous
  Country: DE (occurrence: DE)
  Receive Date: 20130715
  Receipt Date: 20130730
  Transmission Date: 20140515
  Serious: Yes (Hospitalization, Other)
  Sender: FDA-Public Use
  Company Number: DE-ASTRAZENECA-2013SE51447

PATIENT
  Age: 597 Month
  Sex: Male
  Weight: 80 kg

DRUGS (11)
  1. QUETIAPINE RETARD [Suspect]
     Indication: BIPOLAR I DISORDER
     Route: 048
     Dates: start: 201206
  2. QUETIAPINE RETARD [Suspect]
     Indication: BIPOLAR I DISORDER
     Route: 048
     Dates: start: 20121213
  3. MIRTAZAPINE [Suspect]
     Indication: BIPOLAR DISORDER
     Route: 048
     Dates: start: 2002, end: 201206
  4. MIRTAZAPINE [Suspect]
     Indication: BIPOLAR DISORDER
     Route: 048
     Dates: start: 201206, end: 201306
  5. PAROXETINE [Suspect]
     Indication: BIPOLAR DISORDER
     Route: 065
  6. CITALOPRAM [Suspect]
     Indication: BIPOLAR DISORDER
     Route: 048
     Dates: start: 2007
  7. OLANZAPINE [Suspect]
     Indication: BIPOLAR DISORDER
     Route: 048
     Dates: start: 201005, end: 201201
  8. OLANZAPINE [Suspect]
     Indication: BIPOLAR DISORDER
     Route: 048
  9. IBUPROFEN [Concomitant]
     Route: 048
     Dates: start: 20130702
  10. PANTOZOL [Concomitant]
     Route: 048
  11. CLEXANE [Concomitant]
     Route: 058
     Dates: start: 20130702

REACTIONS (1)
  - Osteonecrosis [Not Recovered/Not Resolved]
